FAERS Safety Report 21682643 (Version 2)
Quarter: 2023Q2

REPORT INFORMATION
  Report Type: Spontaneous
  Country: US (occurrence: US)
  Receive Date: 20221205
  Receipt Date: 20230511
  Transmission Date: 20230722
  Serious: No
  Sender: FDA-Public Use
  Company Number: US-PFIZER INC-PV202200115994

PATIENT
  Age: 39 Year
  Sex: Female

DRUGS (1)
  1. XELJANZ [Suspect]
     Active Substance: TOFACITINIB CITRATE
     Indication: Rheumatoid arthritis
     Dosage: 5 MG, 2X/DAY
     Route: 048
     Dates: start: 20221030

REACTIONS (6)
  - Anxiety [Not Recovered/Not Resolved]
  - Condition aggravated [Recovering/Resolving]
  - Illness [Unknown]
  - Product dose omission in error [Unknown]
  - Musculoskeletal stiffness [Unknown]
  - Pain [Unknown]
